FAERS Safety Report 7265306-X (Version None)
Quarter: 2011Q1

REPORT INFORMATION
  Report Type: 
  Country: None (occurrence: None)
  Receive Date: 20110131
  Receipt Date: 20110120
  Transmission Date: 20110831
  Serious: Yes (Hospitalization)
  Sender: FDA-Public Use
  Company Number: JP-ASTRAZENECA-2011SE03675

PATIENT
  Age: 73 Year
  Sex: Male

DRUGS (4)
  1. ZOLADEX [Suspect]
     Indication: PROSTATE CANCER
     Route: 058
     Dates: start: 20110119
  2. BICALUTAMIDE [Suspect]
     Route: 048
     Dates: start: 20110111
  3. PANALDINE [Concomitant]
     Dosage: DOSE UNKNOWN
     Route: 048
  4. GLIMICRON [Concomitant]
     Dosage: DOSE UNKNOWN
     Route: 048

REACTIONS (5)
  - TOXIC SKIN ERUPTION [None]
  - VOMITING [None]
  - PYREXIA [None]
  - C-REACTIVE PROTEIN INCREASED [None]
  - WHITE BLOOD CELL COUNT INCREASED [None]
